FAERS Safety Report 6531499-2 (Version None)
Quarter: 2010Q1

REPORT INFORMATION
  Report Type: 
  Country: None (occurrence: None)
  Receive Date: 20100108
  Receipt Date: 20100104
  Transmission Date: 20100710
  Serious: Yes (Other)
  Sender: FDA-Public Use
  Company Number: US-PFIZER INC-2006085371

PATIENT
  Sex: Female

DRUGS (11)
  1. PROVERA [Suspect]
     Indication: HORMONE REPLACEMENT THERAPY
     Dosage: UNK
     Route: 048
     Dates: start: 19910101, end: 19950101
  2. PROVERA [Suspect]
     Dosage: 2.5 MG, UNK
     Dates: start: 19950601, end: 20030801
  3. MEDROXYPROGESTERONE AND MEDROXYPROGESTERONE ACETATE [Suspect]
     Indication: HORMONE REPLACEMENT THERAPY
     Dosage: UNK
     Route: 048
     Dates: start: 19910101, end: 19950101
  4. MEDROXYPROGESTERONE AND MEDROXYPROGESTERONE ACETATE [Suspect]
     Dosage: 2.5 MG, UNK
     Dates: start: 19950601, end: 20030801
  5. PREMARIN [Suspect]
     Indication: HORMONE REPLACEMENT THERAPY
     Dosage: UNK
     Route: 065
     Dates: start: 19910101, end: 19950101
  6. PREMARIN [Suspect]
     Dosage: 0.625 MG, UNK
     Dates: start: 19950601, end: 19961201
  7. PREMARIN [Suspect]
     Dosage: 0.3 MG, UNK
     Dates: start: 19980701, end: 20030801
  8. PREMPRO [Suspect]
     Indication: HORMONE REPLACEMENT THERAPY
     Dates: start: 19950101, end: 20030101
  9. PREMPRO [Suspect]
     Dosage: 0.625/2.5MG
     Dates: start: 19990701, end: 20020701
  10. MEDROXYPROGESTERONE ACETATE [Suspect]
     Indication: HORMONE REPLACEMENT THERAPY
     Dosage: UNK
     Dates: start: 19910101, end: 19950101
  11. MAXZIDE [Concomitant]
     Indication: BLOOD PRESSURE INCREASED

REACTIONS (1)
  - BREAST CANCER FEMALE [None]
